FAERS Safety Report 6692126-7 (Version None)
Quarter: 2010Q2

REPORT INFORMATION
  Report Type: 
  Country: None (occurrence: None)
  Receive Date: 20100422
  Receipt Date: 20090715
  Transmission Date: 20101027
  Serious: No
  Sender: FDA-Public Use
  Company Number: US-ASTRAZENECA-2009UW20174

PATIENT
  Age: 51 Year
  Sex: Female

DRUGS (4)
  1. TOPROL-XL [Suspect]
     Route: 048
     Dates: start: 20030101, end: 20090501
  2. METOPROLOL TARTRATE [Suspect]
     Dates: start: 20090501, end: 20090601
  3. METOPROLOL TARTRATE [Suspect]
     Dates: start: 20090601
  4. CHANTIX [Suspect]
     Dates: start: 20090601

REACTIONS (4)
  - FATIGUE [None]
  - HYPERTENSION [None]
  - HYPOTENSION [None]
  - SOMNOLENCE [None]
